FAERS Safety Report 9059251 (Version 1)
Quarter: 2013Q1

REPORT INFORMATION
  Report Type: Report from Study
  Country: FR (occurrence: FR)
  Receive Date: 20130211
  Receipt Date: 20130211
  Transmission Date: 20140127
  Serious: Yes (Hospitalization)
  Sender: FDA-Public Use
  Company Number: FR-ROCHE-1188372

PATIENT
  Age: 64 None
  Sex: Female
  Weight: 62 kg

DRUGS (17)
  1. RITUXIMAB [Suspect]
     Indication: MALIGNANT LYMPHOID NEOPLASM
     Dosage: 650 MG/CYCLE, ON D4/CYCLE 1 THEN D1/OTHER CYCLES
     Route: 042
     Dates: start: 20120823
  2. RITUXIMAB [Suspect]
     Dosage: D1, CYCLE 4
     Route: 042
     Dates: start: 20121026
  3. RITUXIMAB [Suspect]
     Route: 042
     Dates: start: 20121127, end: 20121127
  4. CYTARABINE [Suspect]
     Indication: MALIGNANT LYMPHOID NEOPLASM
     Dosage: 3450 MG/D ON D1 AND D2/CYCLE, D1, CYCLE 1
     Route: 042
     Dates: start: 20120823
  5. CYTARABINE [Suspect]
     Dosage: D1, CYCLE 4
     Route: 042
     Dates: start: 20121026
  6. CYTARABINE [Suspect]
     Route: 042
     Dates: start: 20121129, end: 20121202
  7. CARMUSTINE [Suspect]
     Indication: MALIGNANT LYMPHOID NEOPLASM
     Route: 065
     Dates: start: 20121128, end: 20121128
  8. ETOPOSIDE [Suspect]
     Indication: MALIGNANT LYMPHOID NEOPLASM
     Route: 065
     Dates: start: 20121129, end: 20121202
  9. MELPHALAN [Suspect]
     Indication: MALIGNANT LYMPHOID NEOPLASM
     Route: 065
     Dates: start: 20121203, end: 20121203
  10. CISPLATIN [Concomitant]
     Dosage: D1, CYCLE 1
     Route: 042
     Dates: start: 20120823
  11. CISPLATIN [Concomitant]
     Dosage: CYCLE 4, D1
     Route: 042
     Dates: start: 20121026
  12. DEXAMETHASONE [Concomitant]
     Dosage: 40 MG/D, D1 CYCLE 1
     Route: 042
     Dates: start: 20120823
  13. DEXAMETHASONE [Concomitant]
     Dosage: 40 MG/D, D1, CYCLE 4
     Route: 042
     Dates: start: 20121026
  14. CARBOPLATIN [Concomitant]
     Route: 065
     Dates: start: 20121005, end: 20121026
  15. SEROPLEX [Concomitant]
     Indication: DEPRESSION
     Dosage: 0.5 MG/D
     Route: 048
     Dates: start: 1990
  16. LERCAN [Concomitant]
     Indication: HYPERTENSION
     Dosage: 10 MG/D
     Route: 048
  17. ALDACTAZINE [Concomitant]
     Indication: HYPERTENSION
     Route: 048

REACTIONS (2)
  - Cytomegalovirus infection [Recovered/Resolved]
  - Pyrexia [Recovered/Resolved]
